FAERS Safety Report 6359139-6 (Version None)
Quarter: 2009Q3

REPORT INFORMATION
  Report Type: 
  Country: None (occurrence: None)
  Receive Date: 20090917
  Receipt Date: 20090904
  Transmission Date: 20100115
  Serious: Yes (Hospitalization, Other)
  Sender: FDA-Public Use
  Company Number: CA-RANBAXY-2009US-27530

PATIENT
  Sex: Male

DRUGS (1)
  1. RAMIPRIL [Suspect]
     Indication: BLOOD PRESSURE INCREASED
     Dosage: UNK, UNK
     Route: 048
     Dates: start: 20090707

REACTIONS (1)
  - BLOOD PRESSURE INCREASED [None]
